FAERS Safety Report 7310464-1 (Version None)
Quarter: 2011Q1

REPORT INFORMATION
  Report Type: 
  Country: None (occurrence: None)
  Receive Date: 20110224
  Receipt Date: 20100910
  Transmission Date: 20110831
  Serious: No
  Sender: FDA-Public Use
  Company Number: US-BRISTOL-MYERS SQUIBB COMPANY-15280332

PATIENT
  Age: 54 Year
  Sex: Male
  Weight: 100 kg

DRUGS (4)
  1. GLUCOVANCE [Suspect]
     Dates: start: 20091215
  2. AMARYL [Concomitant]
  3. EFFEXOR [Concomitant]
  4. METFORMIN HCL [Suspect]
     Dosage: THERAPY START FROM ABOUT 2 YEARS AGO

REACTIONS (5)
  - VOMITING [None]
  - HYPERHIDROSIS [None]
  - ABDOMINAL DISCOMFORT [None]
  - MALAISE [None]
  - DECREASED APPETITE [None]
